FAERS Safety Report 19707948 (Version 1)
Quarter: 2021Q3

REPORT INFORMATION
  Report Type: Spontaneous
  Country: US (occurrence: US)
  Receive Date: 20210816
  Receipt Date: 20210816
  Transmission Date: 20211014
  Serious: No
  Sender: FDA-Public Use
  Company Number: None

PATIENT
  Sex: Female

DRUGS (18)
  1. COPAXONE [Suspect]
     Active Substance: GLATIRAMER ACETATE
     Indication: MULTIPLE SCLEROSIS
     Route: 058
     Dates: start: 20140603
  2. OXYBUTYNIN. [Concomitant]
     Active Substance: OXYBUTYNIN CHLORIDE
  3. TRAZODONE [Concomitant]
     Active Substance: TRAZODONE HYDROCHLORIDE
  4. AMITRIPTYUN [Concomitant]
  5. LORAZEPAM. [Concomitant]
     Active Substance: LORAZEPAM
  6. MIRTAZAPINE. [Concomitant]
     Active Substance: MIRTAZAPINE
  7. OXCARBAZEPIN [Concomitant]
     Active Substance: OXCARBAZEPINE
  8. PULMICORT TURBUHALER [Concomitant]
     Active Substance: BUDESONIDE
  9. RISPERIDONE. [Concomitant]
     Active Substance: RISPERIDONE
  10. ATORVASTATIN [Concomitant]
     Active Substance: ATORVASTATIN
  11. LIPITOR [Concomitant]
     Active Substance: ATORVASTATIN CALCIUM
  12. FLUTICASONE SPR [Concomitant]
  13. PREDNISONE. [Concomitant]
     Active Substance: PREDNISONE
  14. VENTOLIN HFA [Concomitant]
     Active Substance: ALBUTEROL SULFATE
  15. LEVETIRACETA [Concomitant]
     Active Substance: LEVETIRACETAM
  16. SYMBICORT [Concomitant]
     Active Substance: BUDESONIDE\FORMOTEROL FUMARATE DIHYDRATE
  17. KEPPRA [Concomitant]
     Active Substance: LEVETIRACETAM
  18. FENOFIBRATE. [Concomitant]
     Active Substance: FENOFIBRATE

REACTIONS (2)
  - Allergy to animal [None]
  - Dyspnoea [None]
